FAERS Safety Report 26178497 (Version 1)
Quarter: 2025Q4

REPORT INFORMATION
  Report Type: Spontaneous
  Country: EU (occurrence: EU)
  Receive Date: 20251219
  Receipt Date: 20251219
  Transmission Date: 20260117
  Serious: Yes (Other)
  Sender: AUROBINDO
  Company Number: EU-ATNAHS-2024-PMNV-FR000018

PATIENT
  Age: 57 Year
  Sex: Female

DRUGS (4)
  1. ALPRAZOLAM [Suspect]
     Active Substance: ALPRAZOLAM
     Indication: Product used for unknown indication
     Dosage: UNK
     Route: 065
  2. VALIUM [Suspect]
     Active Substance: DIAZEPAM
     Indication: Product used for unknown indication
     Dosage: 2 BOXES OF VALIUM
     Route: 065
  3. BROMAZEPAM [Suspect]
     Active Substance: BROMAZEPAM
     Indication: Product used for unknown indication
     Dosage: UNK
     Route: 061
  4. COCAINE [Suspect]
     Active Substance: COCAINE
     Indication: Product used for unknown indication
     Dosage: FOR 2 YEARS
     Route: 065

REACTIONS (5)
  - Drug abuse [Unknown]
  - Suicide attempt [Unknown]
  - Intentional product misuse [Unknown]
  - Depression [Unknown]
  - Mydriasis [Unknown]

NARRATIVE: CASE EVENT DATE: 20130101
